FAERS Safety Report 22315986 (Version 1)
Quarter: 2023Q2

REPORT INFORMATION
  Report Type: Spontaneous
  Country: US (occurrence: US)
  Receive Date: 20230512
  Receipt Date: 20230512
  Transmission Date: 20230722
  Serious: Yes (Other)
  Sender: FDA-Public Use
  Company Number: US-HORIZON THERAPEUTICS-HZN-2023-003550

PATIENT

DRUGS (9)
  1. TEPROTUMUMAB-TRBW [Suspect]
     Active Substance: TEPROTUMUMAB-TRBW
     Indication: Endocrine ophthalmopathy
     Dosage: FIRST INFUSION UNK
     Route: 042
  2. TEPROTUMUMAB-TRBW [Suspect]
     Active Substance: TEPROTUMUMAB-TRBW
     Dosage: 2ND INFUSION UNK
     Route: 042
  3. METHIMAZOLE [Suspect]
     Active Substance: METHIMAZOLE
     Indication: Product used for unknown indication
     Dosage: 10 MG, TID
     Route: 065
  4. METHIMAZOLE [Suspect]
     Active Substance: METHIMAZOLE
     Dosage: 10 MG, BID
     Route: 065
  5. METHIMAZOLE [Suspect]
     Active Substance: METHIMAZOLE
     Dosage: 5 MG, BID
     Route: 065
     Dates: start: 202206
  6. METHIMAZOLE [Suspect]
     Active Substance: METHIMAZOLE
     Dosage: 5 MG, QD
     Route: 065
  7. METHIMAZOLE [Suspect]
     Active Substance: METHIMAZOLE
     Dosage: 2.5 MG, QD
     Route: 065
  8. PROPRANOLOL [Concomitant]
     Active Substance: PROPRANOLOL HYDROCHLORIDE
     Dosage: 60 MG EXTENDED-RELEASE, DAILY
  9. VARENICLINE [Concomitant]
     Active Substance: VARENICLINE
     Indication: Tobacco user

REACTIONS (1)
  - Type 1 diabetes mellitus [Unknown]
